FAERS Safety Report 23644895 (Version 3)
Quarter: 2024Q2

REPORT INFORMATION
  Report Type: Report from Study
  Country: CA (occurrence: CA)
  Receive Date: 20240318
  Receipt Date: 20240412
  Transmission Date: 20240716
  Serious: Yes (Other)
  Sender: FDA-Public Use
  Company Number: CA-OTSUKA-2021_040003

PATIENT
  Age: 42 Year
  Sex: Female

DRUGS (6)
  1. TOLVAPTAN [Suspect]
     Active Substance: TOLVAPTAN
     Indication: Congenital cystic kidney disease
     Dosage: 45 MG
     Route: 048
     Dates: start: 20210301
  2. TOLVAPTAN [Suspect]
     Active Substance: TOLVAPTAN
     Indication: Congenital cystic kidney disease
     Dosage: 15 MG
     Route: 048
     Dates: start: 20210301
  3. TOLVAPTAN [Suspect]
     Active Substance: TOLVAPTAN
     Indication: Renal disorder
     Dosage: 45 MG, QD (IN THE MORNING)
     Route: 048
  4. TOLVAPTAN [Suspect]
     Active Substance: TOLVAPTAN
     Dosage: 15 MG, QD (IN THE EVENING)
     Route: 048
  5. TOLVAPTAN [Suspect]
     Active Substance: TOLVAPTAN
     Dosage: 30 MG
     Route: 048
     Dates: start: 20231124
  6. TOLVAPTAN [Suspect]
     Active Substance: TOLVAPTAN
     Dosage: 15 MG
     Route: 048
     Dates: start: 20231124

REACTIONS (11)
  - Rheumatoid arthritis [Unknown]
  - Polypectomy [Unknown]
  - Alanine aminotransferase decreased [Unknown]
  - Hypervolaemia [Unknown]
  - Phlebitis [Unknown]
  - Fluid retention [Not Recovered/Not Resolved]
  - Peripheral swelling [Unknown]
  - Oedema peripheral [Unknown]
  - Malaise [Unknown]
  - Product dose omission in error [Recovered/Resolved]
  - Underdose [Unknown]

NARRATIVE: CASE EVENT DATE: 20231124
